FAERS Safety Report 17657100 (Version 1)
Quarter: 2020Q2

REPORT INFORMATION
  Report Type: Spontaneous
  Country: US (occurrence: US)
  Receive Date: 20200410
  Receipt Date: 20200410
  Transmission Date: 20200713
  Serious: Yes (Other)
  Sender: FDA-Public Use
  Company Number: US-AMNEAL PHARMACEUTICALS-2020-AMRX-01034

PATIENT
  Sex: Female
  Weight: 89 kg

DRUGS (23)
  1. CIPRO [Suspect]
     Active Substance: CIPROFLOXACIN HYDROCHLORIDE
     Indication: URINARY TRACT INFECTION
  2. MUCINEX [Suspect]
     Active Substance: GUAIFENESIN
     Indication: PRODUCT USED FOR UNKNOWN INDICATION
     Dosage: UNK
     Route: 065
  3. CETIRIZINE [Concomitant]
     Active Substance: CETIRIZINE HYDROCHLORIDE
     Indication: PRODUCT USED FOR UNKNOWN INDICATION
     Dosage: UNK
     Route: 065
  4. MIRALAX [Concomitant]
     Active Substance: POLYETHYLENE GLYCOL 3350
     Indication: PRODUCT USED FOR UNKNOWN INDICATION
     Dosage: UNK
     Route: 065
  5. RYTARY [Suspect]
     Active Substance: CARBIDOPA\LEVODOPA
     Indication: PRODUCT USED FOR UNKNOWN INDICATION
     Dosage: 36.25/145 MG, 3 CAPSULES, BID
     Route: 065
  6. GOCOVRI [Suspect]
     Active Substance: AMANTADINE
     Indication: DYSKINESIA
     Dosage: 137 MILLIGRAM, 1 /DAY AT BEDTIME
     Route: 048
     Dates: start: 20180518
  7. MAGNESIUM [Concomitant]
     Active Substance: MAGNESIUM
     Indication: SUPPLEMENTATION THERAPY
     Dosage: UNK
     Route: 065
     Dates: end: 2019
  8. KEFLEX [Suspect]
     Active Substance: CEPHALEXIN
     Indication: INFECTED CYST
     Dosage: UNK
     Route: 065
     Dates: start: 201808
  9. IBUPROFEN. [Concomitant]
     Active Substance: IBUPROFEN
     Indication: PRODUCT USED FOR UNKNOWN INDICATION
     Dosage: UNK
     Route: 065
  10. SYNTHROID [Concomitant]
     Active Substance: LEVOTHYROXINE SODIUM
     Indication: PRODUCT USED FOR UNKNOWN INDICATION
     Dosage: 112 MCG
     Route: 065
     Dates: start: 1989, end: 201912
  11. MIGRELIEF [Concomitant]
     Active Substance: DIETARY SUPPLEMENT
     Indication: PRODUCT USED FOR UNKNOWN INDICATION
     Dosage: UNK
     Route: 065
     Dates: end: 2019
  12. GOCOVRI [Suspect]
     Active Substance: AMANTADINE
     Dosage: 137 MILLIGRAM, 1 /DAY AT BEDTIME
     Route: 048
  13. CIPRO [Suspect]
     Active Substance: CIPROFLOXACIN HYDROCHLORIDE
     Indication: FUNGAL INFECTION
     Dosage: UNK
     Route: 065
  14. BENZONATATE. [Suspect]
     Active Substance: BENZONATATE
     Indication: COUGH
     Dosage: 200 MILLIGRAM, TID
     Route: 065
     Dates: start: 201904, end: 2019
  15. CLONAZEPAM. [Concomitant]
     Active Substance: CLONAZEPAM
     Indication: PRODUCT USED FOR UNKNOWN INDICATION
     Dosage: UNK
     Route: 065
  16. CARBIDOPA-LEVODOPA ER [Suspect]
     Active Substance: CARBIDOPA\LEVODOPA
     Indication: PRODUCT USED FOR UNKNOWN INDICATION
     Dosage: 1 TABLETS,  1X DAY BEDTIME
     Route: 065
  17. CARBIDOPA/LEVODOPA [Suspect]
     Active Substance: CARBIDOPA\LEVODOPA
     Indication: PRODUCT USED FOR UNKNOWN INDICATION
     Dosage: 1 TABLETS AS NEEDED
     Route: 065
  18. ROPINIROLE. [Concomitant]
     Active Substance: ROPINIROLE
     Indication: PRODUCT USED FOR UNKNOWN INDICATION
     Dosage: UNK
     Route: 065
  19. SYNTHROID [Concomitant]
     Active Substance: LEVOTHYROXINE SODIUM
     Dosage: 100 MCG
     Route: 065
     Dates: start: 201912
  20. RYTARY [Suspect]
     Active Substance: CARBIDOPA\LEVODOPA
     Dosage: 23.75/95 MG, 4 CAPSULES, 1 /DAY
     Route: 048
  21. GOCOVRI [Suspect]
     Active Substance: AMANTADINE
     Dosage: 274 MILLIGRAM, 1 /DAY AT BEDTIME
     Route: 048
  22. GOCOVRI [Suspect]
     Active Substance: AMANTADINE
     Dosage: 274 MILLIGRAM, 1 /DAY AT BEDTIME
     Route: 048
  23. MULTIVITAMIN FOR WOMEN [Concomitant]
     Active Substance: MINERALS\VITAMINS
     Indication: SUPPLEMENTATION THERAPY
     Dosage: UNK
     Route: 065

REACTIONS (20)
  - Infected cyst [Not Recovered/Not Resolved]
  - Muscular weakness [Recovered/Resolved]
  - Livedo reticularis [Not Recovered/Not Resolved]
  - Pain [Recovered/Resolved]
  - Dehydration [Recovered/Resolved]
  - Constipation [Not Recovered/Not Resolved]
  - Vein rupture [Not Recovered/Not Resolved]
  - Nausea [Not Recovered/Not Resolved]
  - Rash [Recovering/Resolving]
  - Freezing phenomenon [Not Recovered/Not Resolved]
  - Peripheral swelling [Not Recovered/Not Resolved]
  - Hallucination, visual [Recovered/Resolved]
  - Fungal infection [Recovered/Resolved]
  - Malaise [Recovered/Resolved]
  - Abdominal pain upper [Recovered/Resolved]
  - Gait disturbance [Not Recovered/Not Resolved]
  - Urinary tract infection [Recovered/Resolved]
  - Skin discolouration [Recovered/Resolved]
  - Conjunctivitis [Recovered/Resolved]
  - Cough [Recovering/Resolving]

NARRATIVE: CASE EVENT DATE: 2018
